FAERS Safety Report 8528692-6 (Version None)
Quarter: 2012Q3

REPORT INFORMATION
  Report Type: 
  Country: None (occurrence: None)
  Receive Date: 20120723
  Receipt Date: 20120712
  Transmission Date: 20120928
  Serious: No
  Sender: FDA-Public Use
  Company Number: US-BIOGENIDEC-2012BI020697

PATIENT
  Age: 49 Year
  Sex: Female

DRUGS (6)
  1. PRILOSEC [Concomitant]
  2. NEURONTIN [Concomitant]
  3. AVONEX [Suspect]
     Route: 030
     Dates: start: 20091122, end: 20120601
  4. AVONEX [Suspect]
     Route: 030
     Dates: start: 20120605
  5. AVONEX [Suspect]
     Indication: MULTIPLE SCLEROSIS
     Route: 030
     Dates: start: 19961101, end: 20000301
  6. PAIN MEDICATION (NOS) [Concomitant]

REACTIONS (5)
  - DIZZINESS [None]
  - HEADACHE [None]
  - CELLULITIS [None]
  - INJECTION SITE REACTION [None]
  - NAUSEA [None]
